FAERS Safety Report 6012957-6 (Version None)
Quarter: 2008Q4

REPORT INFORMATION
  Report Type: 
  Country: None (occurrence: None)
  Receive Date: 20081219
  Receipt Date: 20080102
  Transmission Date: 20090506
  Serious: No
  Sender: FDA-Public Use
  Company Number: A0701487A

PATIENT
  Sex: Male

DRUGS (1)
  1. TRIZIVIR [Suspect]
     Indication: DRUG USE FOR UNKNOWN INDICATION
     Route: 048
     Dates: start: 20010101

REACTIONS (3)
  - DYSPHAGIA [None]
  - DYSPHONIA [None]
  - VOCAL CORD DISORDER [None]
